FAERS Safety Report 17750143 (Version 3)
Quarter: 2020Q3

REPORT INFORMATION
  Report Type: Report from Study
  Country: ES (occurrence: ES)
  Receive Date: 20200506
  Receipt Date: 20200829
  Transmission Date: 20201102
  Serious: Yes (Hospitalization, Other)
  Sender: FDA-Public Use
  Company Number: ES-ACCORD-180117

PATIENT
  Age: 65 Year
  Sex: Male

DRUGS (5)
  1. MYCOPHENOLATE MOFETIL/MYCOPHENOLATE SODIUM/MYCOPHENOLIC ACID [Suspect]
     Active Substance: MYCOPHENOLIC ACID
     Indication: IMMUNOSUPPRESSION
     Dates: start: 202003
  2. PREDNISONE. [Suspect]
     Active Substance: PREDNISONE
     Indication: IMMUNOSUPPRESSION
  3. HYDROXYCHLOROQUINE [Concomitant]
     Active Substance: HYDROXYCHLOROQUINE
     Indication: CORONAVIRUS INFECTION
     Dosage: 400 MG TWICE DAILY ORALLY FOR THE FIRST 24 HOURS, FOLLOWED BY 200 MG TWICE DAILY FOR 5?10 DAYS
     Route: 048
  4. LOPINAVIR/RITONAVIR [Suspect]
     Active Substance: LOPINAVIR\RITONAVIR
     Indication: CORONAVIRUS INFECTION
     Dosage: (200/100 MG TWICE DAILY ORALLY FOR UP TO 14 DAYS)
     Route: 048
     Dates: start: 202003
  5. TACROLIMUS. [Suspect]
     Active Substance: TACROLIMUS
     Indication: IMMUNOSUPPRESSION
     Dates: start: 202003

REACTIONS (5)
  - Off label use [Unknown]
  - Drug level increased [Unknown]
  - Renal failure [Recovering/Resolving]
  - Gastrointestinal disorder [Unknown]
  - Coronavirus infection [Unknown]

NARRATIVE: CASE EVENT DATE: 202003
